FAERS Safety Report 10239934 (Version 3)
Quarter: 2014Q2

REPORT INFORMATION
  Report Type: Spontaneous
  Country: US (occurrence: US)
  Receive Date: 20140616
  Receipt Date: 20140619
  Transmission Date: 20141212
  Serious: Yes (Other)
  Sender: FDA-Public Use
  Company Number: US-ALLERGAN-1406864US

PATIENT
  Age: 60 Year
  Sex: Female
  Weight: 55.33 kg

DRUGS (5)
  1. BOTOX [Suspect]
     Indication: MIGRAINE
     Dosage: 195 UNITS, SINGLE
     Route: 030
     Dates: start: 20130125, end: 20130125
  2. ATENOLOL [Concomitant]
     Indication: PRODUCT USED FOR UNKNOWN INDICATION
     Dosage: 25 MG, UNK
     Route: 048
  3. FIORINAL                           /00090401/ [Concomitant]
     Indication: PRODUCT USED FOR UNKNOWN INDICATION
  4. IMITREX                            /01044801/ [Concomitant]
     Indication: PRODUCT USED FOR UNKNOWN INDICATION
     Dosage: UNK
  5. TRAZODONE HCL [Concomitant]
     Indication: PRODUCT USED FOR UNKNOWN INDICATION
     Dosage: 100 MG, UNK
     Route: 048

REACTIONS (15)
  - Suicidal ideation [Unknown]
  - Swelling face [Recovering/Resolving]
  - Headache [Not Recovered/Not Resolved]
  - Musculoskeletal pain [Recovering/Resolving]
  - Neck pain [Recovering/Resolving]
  - Chest pain [Unknown]
  - Paraesthesia [Unknown]
  - Eyelid ptosis [Recovering/Resolving]
  - Muscular weakness [Unknown]
  - Mobility decreased [Unknown]
  - Impaired work ability [Not Recovered/Not Resolved]
  - Dyspnoea [Unknown]
  - Eyelid oedema [Unknown]
  - Post-traumatic stress disorder [Unknown]
  - Drug ineffective [Unknown]
